FAERS Safety Report 7947159 (Version 4)
Quarter: 2012Q4

REPORT INFORMATION
  Report Type: Report from Study
  Country: US (occurrence: None)
  Receive Date: 20110420
  Receipt Date: 20120821
  Transmission Date: 20130627
  Serious: Yes (Congenital Anomaly, Other)
  Sender: FDA-Public Use
  Company Number: AUR-APU-2011-01218

PATIENT
  Age: 12 Month
  Sex: Male
  Weight: 22.8 kg

DRUGS (4)
  1. RIBAVIRIN [Suspect]
     Indication: PRODUCT USED FOR UNKNOWN INDICATION
     Dosage: TRANSPLACENTAL
     Route: 064
     Dates: start: 20090612, end: 20100514
  2. PEGASYS [Suspect]
     Indication: PRODUCT USED FOR UNKNOWN INDICATION
     Dosage: 80 MCG, 1 WK, TRANSPLACENTAL
     Route: 064
     Dates: start: 20090612, end: 20100507
  3. PRILOSEC [Concomitant]
  4. ZYRTEC [Concomitant]

REACTIONS (6)
  - CYTOGENETIC ABNORMALITY [None]
  - VARICOSE VEIN [None]
  - UMBILICAL CORD ABNORMALITY [None]
  - JAUNDICE [None]
  - HAEMOGLOBIN DECREASED [None]
  - MATERNAL DRUGS AFFECTING FOETUS [None]
